FAERS Safety Report 7748520-6 (Version None)
Quarter: 2011Q3

REPORT INFORMATION
  Report Type: 
  Country: None (occurrence: None)
  Receive Date: 20110914
  Receipt Date: 20110906
  Transmission Date: 20111222
  Serious: No
  Sender: FDA-Public Use
  Company Number: US-BIOGENIDEC-2011BI022495

PATIENT
  Sex: Female

DRUGS (1)
  1. TYSABRI [Suspect]
     Indication: MULTIPLE SCLEROSIS
     Route: 042
     Dates: start: 20110613

REACTIONS (10)
  - MENSTRUATION DELAYED [None]
  - INSOMNIA [None]
  - BURNING SENSATION [None]
  - PAIN [None]
  - DECREASED APPETITE [None]
  - MOBILITY DECREASED [None]
  - HEADACHE [None]
  - HYPOTENSION [None]
  - NAUSEA [None]
  - FATIGUE [None]
